FAERS Safety Report 12144420 (Version 1)
Quarter: 2016Q1

REPORT INFORMATION
  Report Type: Spontaneous
  Country: US (occurrence: None)
  Receive Date: 20160303
  Receipt Date: 20160303
  Transmission Date: 20160526
  Serious: Yes (Disabling)
  Sender: FDA-Public Use
  Company Number: None

PATIENT
  Age: 29 Year
  Sex: Female
  Weight: 99.79 kg

DRUGS (3)
  1. SUBOXONE [Concomitant]
     Active Substance: BUPRENORPHINE HYDROCHLORIDE\NALOXONE HYDROCHLORIDE
  2. BUPRENORPHINE AND NALOXONE [Suspect]
     Active Substance: BUPRENORPHINE\NALOXONE
     Indication: DRUG DEPENDENCE
     Dosage: 1 FILM   TAKEN UNDER THE TONGUE
     Dates: start: 20151110, end: 20160302
  3. IRON SUPPLEMENTS [Concomitant]
     Active Substance: IRON

REACTIONS (1)
  - Stomatitis [None]

NARRATIVE: CASE EVENT DATE: 20160301
